FAERS Safety Report 15698283 (Version 1)
Quarter: 2018Q4

REPORT INFORMATION
  Report Type: Spontaneous
  Country: US (occurrence: US)
  Receive Date: 20181207
  Receipt Date: 20181207
  Transmission Date: 20190205
  Serious: Yes (Other)
  Sender: FDA-Public Use
  Company Number: US-ALKEM LABORATORIES LIMITED-US-ALKEM-2018-08742

PATIENT
  Age: 65 Year
  Sex: Female

DRUGS (2)
  1. CAPECITABINE. [Suspect]
     Active Substance: CAPECITABINE
     Indication: THYMIC CANCER METASTATIC
     Dosage: 1000 MG/M2, BID DAY 1 TO DAY 14 ON A 21-DAY CYCLE
     Route: 048
  2. CELECOXIB. [Suspect]
     Active Substance: CELECOXIB
     Indication: THYMIC CANCER METASTATIC
     Dosage: 200 MG, BID DAY 1 TO DAY 14 ON A 21-DAY CYCLE
     Route: 048

REACTIONS (2)
  - Therapy partial responder [Unknown]
  - Disease progression [Unknown]
